FAERS Safety Report 8417633-8 (Version None)
Quarter: 2012Q2

REPORT INFORMATION
  Report Type: 
  Country: None (occurrence: None)
  Receive Date: 20120606
  Receipt Date: 20120530
  Transmission Date: 20120825
  Serious: Yes (Hospitalization)
  Sender: FDA-Public Use
  Company Number: DE-ROCHE-1074521

PATIENT
  Age: 72 Year
  Sex: Male
  Weight: 79 kg

DRUGS (7)
  1. VEMURAFENIB [Suspect]
     Indication: MALIGNANT MELANOMA
     Route: 048
     Dates: start: 20120111, end: 20120303
  2. DIOVAN HCT [Concomitant]
     Dosage: TDD : 160/25 MG
     Dates: start: 20010101
  3. BISOPROLOL FUMARATE [Concomitant]
     Dates: start: 20010101, end: 20120329
  4. VEMURAFENIB [Suspect]
     Route: 048
     Dates: start: 20120308
  5. METFORMIN HCL [Concomitant]
     Dates: start: 20090510, end: 20120307
  6. ALLOPURINOL [Concomitant]
     Dates: start: 20081001
  7. ASPIRIN [Concomitant]
     Dates: start: 20010101

REACTIONS (1)
  - HYPERGLYCAEMIA [None]
